FAERS Safety Report 18989399 (Version 4)
Quarter: 2021Q3

REPORT INFORMATION
  Report Type: Spontaneous
  Country: JP (occurrence: JP)
  Receive Date: 20210310
  Receipt Date: 20210727
  Transmission Date: 20211014
  Serious: Yes (Other)
  Sender: FDA-Public Use
  Company Number: JP-AMGEN-JPNSP2021034757

PATIENT
  Age: 81 Year
  Sex: Male

DRUGS (7)
  1. LOXONIN [Concomitant]
     Active Substance: LOXOPROFEN SODIUM
     Dosage: 180 MILLIGRAM, QD
  2. LOXOPROFEN SODIUM HYDRATE [Concomitant]
     Active Substance: LOXOPROFEN SODIUM DIHYDRATE
     Indication: BACK PAIN
     Dosage: 1 DOSAGE FORM, BID
     Dates: start: 20210112, end: 20210329
  3. MUCOSTA [Concomitant]
     Active Substance: REBAMIPIDE
     Dosage: 300 MILLIGRAM
  4. REBAMIPIDE [Concomitant]
     Active Substance: REBAMIPIDE
     Indication: ADVERSE DRUG REACTION
     Dosage: 1 DOSAGE FORM, BID
     Dates: start: 20210112, end: 20210329
  5. EVENITY [Suspect]
     Active Substance: ROMOSOZUMAB-AQQG
     Indication: OSTEOPOROTIC FRACTURE
     Dosage: 210 MILLIGRAM
     Route: 058
     Dates: start: 20210112, end: 20210208
  6. EQUMET [Concomitant]
     Active Substance: METFORMIN HYDROCHLORIDE\VILDAGLIPTIN
     Indication: TYPE 2 DIABETES MELLITUS
     Dosage: 2 DOSAGE FORM, QD
  7. BLOPRESS [Concomitant]
     Active Substance: CANDESARTAN CILEXETIL
     Indication: HYPERTENSION
     Dosage: 4 MILLIGRAM, QD

REACTIONS (2)
  - Loss of consciousness [Recovered/Resolved]
  - Fall [Recovered/Resolved]

NARRATIVE: CASE EVENT DATE: 20210228
